FAERS Safety Report 4299953-4 (Version None)
Quarter: 2004Q1

REPORT INFORMATION
  Report Type: 
  Country: None (occurrence: None)
  Receive Date: 20040218
  Receipt Date: 20040204
  Transmission Date: 20041129
  Serious: Yes (Disabling)
  Sender: FDA-Public Use
  Company Number: IT-JNJFOC-20040200989

PATIENT
  Age: 70 Year
  Sex: Male

DRUGS (4)
  1. TOPAMAX [Suspect]
     Indication: POST HERPETIC NEURALGIA
     Dosage: 25 MG, 2 IN 1 DAY, ORAL
     Route: 048
     Dates: start: 20030204, end: 20040123
  2. CONTRAMAL (TRAMADOL HYDROCHJLORIDE) SUSTAINED RELEASE TABLETS [Concomitant]
  3. IGROTON (CHLORTALIDONE) TABLETS [Concomitant]
  4. NEURONTIN [Concomitant]

REACTIONS (3)
  - HAEMOGLOBIN DECREASED [None]
  - RED BLOOD CELL COUNT DECREASED [None]
  - SKIN NECROSIS [None]
